FAERS Safety Report 7038389-X (Version None)
Quarter: 2010Q4

REPORT INFORMATION
  Report Type: 
  Country: None (occurrence: None)
  Receive Date: 20101011
  Receipt Date: 20100522
  Transmission Date: 20110411
  Serious: No
  Sender: FDA-Public Use
  Company Number: US-PFIZER INC-2010064622

PATIENT
  Sex: Female
  Weight: 51.247 kg

DRUGS (3)
  1. NEURONTIN [Suspect]
     Indication: CONVULSION
     Dosage: 1600 MG, 3X/DAY
     Route: 048
  2. DIAZEPAM [Concomitant]
     Indication: CLAUSTROPHOBIA
     Dosage: 10 MG, 4X/DAY
     Route: 048
  3. NEXIUM [Concomitant]
     Dosage: 40 MG, 1X/DAY
     Route: 048

REACTIONS (1)
  - PAIN [None]
